FAERS Safety Report 8193767-0 (Version None)
Quarter: 2012Q1

REPORT INFORMATION
  Report Type: 
  Country: None (occurrence: None)
  Receive Date: 20120308
  Receipt Date: 20120222
  Transmission Date: 20120608
  Serious: Yes (Other)
  Sender: FDA-Public Use
  Company Number: US-WATSON-2012-03280

PATIENT
  Age: 17 Year
  Sex: Male

DRUGS (1)
  1. METRONIDAZOLE [Suspect]
     Indication: PRODUCT USED FOR UNKNOWN INDICATION
     Dosage: 500 MG, TID
     Route: 065

REACTIONS (6)
  - NEUROPATHY PERIPHERAL [None]
  - BALANCE DISORDER [None]
  - TREMOR [None]
  - GAIT DISTURBANCE [None]
  - NUCLEAR MAGNETIC RESONANCE IMAGING BRAIN ABNORMAL [None]
  - VISUAL ACUITY REDUCED [None]
